FAERS Safety Report 13543966 (Version 2)
Quarter: 2017Q3

REPORT INFORMATION
  Report Type: Spontaneous
  Country: US (occurrence: US)
  Receive Date: 20170515
  Receipt Date: 20170814
  Transmission Date: 20171127
  Serious: No
  Sender: FDA-Public Use
  Company Number: US-ASTRAZENECA-2017SE50590

PATIENT
  Age: 1051 Month
  Sex: Female
  Weight: 59 kg

DRUGS (7)
  1. SYMBICORT [Suspect]
     Active Substance: BUDESONIDE\FORMOTEROL FUMARATE DIHYDRATE
     Indication: DYSPNOEA
     Dosage: 80-4.5. MCG, 2 PUFFS TWICE A DAY
     Route: 055
     Dates: start: 2014
  2. LATANOPROST. [Concomitant]
     Active Substance: LATANOPROST
     Indication: GLAUCOMA
     Route: 047
  3. SYMBICORT [Suspect]
     Active Substance: BUDESONIDE\FORMOTEROL FUMARATE DIHYDRATE
     Indication: PNEUMONIA
     Dosage: 1 PUFF TWICE A DAY
     Route: 055
     Dates: start: 2016
  4. SYMBICORT [Suspect]
     Active Substance: BUDESONIDE\FORMOTEROL FUMARATE DIHYDRATE
     Indication: DYSPNOEA
     Dosage: 1 PUFF TWICE A DAY
     Route: 055
     Dates: start: 2016
  5. SYMBICORT [Suspect]
     Active Substance: BUDESONIDE\FORMOTEROL FUMARATE DIHYDRATE
     Indication: PNEUMONIA
     Dosage: 80-4.5. MCG, 2 PUFFS TWICE A DAY
     Route: 055
     Dates: start: 2014
  6. RALOXIFENE. [Concomitant]
     Active Substance: RALOXIFENE
     Dosage: EVERY DAY
     Route: 048
  7. OXYGEN. [Concomitant]
     Active Substance: OXYGEN
     Indication: SLEEP DISORDER
     Route: 055

REACTIONS (7)
  - Device malfunction [Unknown]
  - Off label use [Unknown]
  - Sleep apnoea syndrome [Unknown]
  - Intentional product misuse [Unknown]
  - Dyspnoea [Unknown]
  - Device failure [Unknown]
  - Product use in unapproved indication [Unknown]

NARRATIVE: CASE EVENT DATE: 201705
